FAERS Safety Report 15092490 (Version 1)
Quarter: 2018Q2

REPORT INFORMATION
  Report Type: Spontaneous
  Country: US (occurrence: US)
  Receive Date: 20180629
  Receipt Date: 20180629
  Transmission Date: 20180711
  Serious: Yes (Hospitalization, Other)
  Sender: FDA-Public Use
  Company Number: US-MYLANLABS-2018M1047307

PATIENT
  Age: 20 Year
  Sex: Female

DRUGS (1)
  1. LOPERAMIDE [Suspect]
     Active Substance: LOPERAMIDE
     Indication: PRODUCT USED FOR UNKNOWN INDICATION
     Dosage: UNK

REACTIONS (5)
  - Tachycardia [Unknown]
  - Electrocardiogram QT prolonged [Recovered/Resolved]
  - Arrhythmia [Unknown]
  - Intentional product misuse [Unknown]
  - Syncope [Unknown]
